FAERS Safety Report 7240535-X (Version None)
Quarter: 2011Q1

REPORT INFORMATION
  Report Type: 
  Country: None (occurrence: None)
  Receive Date: 20110118
  Receipt Date: 20110105
  Transmission Date: 20110831
  Serious: Yes (Disabling, Other)
  Sender: FDA-Public Use
  Company Number: 024951

PATIENT
  Sex: Female

DRUGS (2)
  1. CIMZIA [Suspect]
     Indication: CROHN'S DISEASE
     Dosage: SUBCUTANEOUS
     Route: 058
     Dates: start: 20100806
  2. PREDNISONE [Suspect]
     Dates: start: 20100701

REACTIONS (4)
  - FALL [None]
  - FRACTURED SACRUM [None]
  - PELVIC FRACTURE [None]
  - BONE DISORDER [None]
